FAERS Safety Report 6249272-1 (Version None)
Quarter: 2009Q2

REPORT INFORMATION
  Report Type: 
  Country: None (occurrence: None)
  Receive Date: 20090629
  Receipt Date: 20090622
  Transmission Date: 20091009
  Serious: Yes (Hospitalization)
  Sender: FDA-Public Use
  Company Number: FR-MERCK-0906FRA00096

PATIENT

DRUGS (1)
  1. CANCIDAS [Suspect]
     Route: 051

REACTIONS (1)
  - CEREBELLAR ATAXIA [None]
